FAERS Safety Report 10287772 (Version 1)
Quarter: 2014Q3

REPORT INFORMATION
  Report Type: Spontaneous
  Country: IT (occurrence: None)
  Receive Date: 20140707
  Receipt Date: 20140707
  Transmission Date: 20150326
  Serious: Yes (Hospitalization)
  Sender: FDA-Public Use
  Company Number: IT-AIKEM-000632

PATIENT
  Age: 63 Year
  Sex: Male

DRUGS (1)
  1. METFORMIN [Suspect]
     Active Substance: METFORMIN HYDROCHLORIDE
     Indication: TYPE 2 DIABETES MELLITUS

REACTIONS (11)
  - Abdominal pain [None]
  - Respiratory rate increased [None]
  - Toxicity to various agents [None]
  - Diarrhoea [None]
  - Tongue dry [None]
  - Metabolic acidosis [None]
  - Tachycardia [None]
  - Dyspnoea [None]
  - Tongue disorder [None]
  - Hyperlactacidaemia [None]
  - Hypoglycaemia [None]
